FAERS Safety Report 7424463-2 (Version None)
Quarter: 2011Q2

REPORT INFORMATION
  Report Type: 
  Country: None (occurrence: None)
  Receive Date: 20110419
  Receipt Date: 20110419
  Transmission Date: 20111010
  Serious: Yes (Hospitalization, Other)
  Sender: FDA-Public Use
  Company Number: CH-PFIZER INC-CH-WYE-G05451010

PATIENT
  Age: 30 Year
  Sex: Female

DRUGS (4)
  1. EFFEXOR [Suspect]
     Indication: POST-TRAUMATIC STRESS DISORDER
     Dosage: 150 MG, 1X/DAY
     Route: 048
     Dates: start: 20090527
  2. SEROQUEL [Interacting]
     Indication: POST-TRAUMATIC STRESS DISORDER
     Dosage: 450 MG, 1X/DAY
     Route: 048
     Dates: start: 20090819, end: 20090909
  3. SEROQUEL [Interacting]
     Dosage: 500 MG, 1X/DAY
     Route: 048
     Dates: start: 20090910
  4. RISPERDAL [Interacting]
     Indication: POST-TRAUMATIC STRESS DISORDER
     Dosage: 2 MG, 1X/DAY
     Route: 048
     Dates: start: 20090910, end: 20090914

REACTIONS (2)
  - AKATHISIA [None]
  - DRUG INTERACTION [None]
